APPROVED DRUG PRODUCT: DONEPEZIL HYDROCHLORIDE
Active Ingredient: DONEPEZIL HYDROCHLORIDE
Strength: 10MG
Dosage Form/Route: TABLET;ORAL
Application: A078841 | Product #002
Applicant: APOTEX INC
Approved: Jun 2, 2011 | RLD: No | RS: No | Type: DISCN